FAERS Safety Report 6674051-0 (Version None)
Quarter: 2010Q2

REPORT INFORMATION
  Report Type: 
  Country: None (occurrence: None)
  Receive Date: 20100407
  Receipt Date: 20100323
  Transmission Date: 20101027
  Serious: Yes (Hospitalization)
  Sender: FDA-Public Use
  Company Number: 006531

PATIENT
  Sex: Female

DRUGS (5)
  1. LACOSAMIDE [Suspect]
     Indication: EPILEPSY
     Dosage: 25 MG BID ORAL, 50 MG BID ORAL, 100 MG BID ORAL
     Route: 048
     Dates: start: 20090729, end: 20090806
  2. LACOSAMIDE [Suspect]
     Indication: EPILEPSY
     Dosage: 25 MG BID ORAL, 50 MG BID ORAL, 100 MG BID ORAL
     Route: 048
     Dates: start: 20090807, end: 20090920
  3. LACOSAMIDE [Suspect]
     Indication: EPILEPSY
     Dosage: 25 MG BID ORAL, 50 MG BID ORAL, 100 MG BID ORAL
     Route: 048
     Dates: start: 20090921
  4. CARBAMAZEPINE [Concomitant]
  5. TOPIRAMATE [Concomitant]

REACTIONS (2)
  - ATRIAL FIBRILLATION [None]
  - LEUKOPENIA [None]
